FAERS Safety Report 6760326-3 (Version None)
Quarter: 2010Q2

REPORT INFORMATION
  Report Type: 
  Country: None (occurrence: None)
  Receive Date: 20100608
  Receipt Date: 20100601
  Transmission Date: 20101027
  Serious: No
  Sender: FDA-Public Use
  Company Number: US-JNJFOC-20100601211

PATIENT
  Sex: Female

DRUGS (2)
  1. DURAGESIC-100 [Suspect]
     Indication: BACK PAIN
     Route: 062
  2. DIOVAN [Concomitant]
     Indication: HYPERTENSION
     Route: 065

REACTIONS (4)
  - INTERVERTEBRAL DISC PROTRUSION [None]
  - NEURALGIA [None]
  - PAIN [None]
  - TREATMENT NONCOMPLIANCE [None]
